FAERS Safety Report 5074853-0 (Version None)
Quarter: 2006Q3

REPORT INFORMATION
  Report Type: 
  Country: None (occurrence: None)
  Receive Date: 20060809
  Receipt Date: 20060530
  Transmission Date: 20061208
  Serious: Yes (Other)
  Sender: FDA-Public Use
  Company Number: US-BAYER-200613619BWH

PATIENT
  Age: 62 Year
  Sex: Female

DRUGS (5)
  1. AVELOX [Suspect]
     Indication: BRONCHITIS
     Dosage: TOTAL DAILY DOSE: 400 MG  UNIT DOSE: 400 MG
     Route: 048
     Dates: start: 20060515, end: 20060524
  2. ARIMIDEX [Concomitant]
     Dosage: TOTAL DAILY DOSE: 1 MG  UNIT DOSE: 1 MG
     Route: 065
  3. TAMBOCOR [Concomitant]
     Dosage: TOTAL DAILY DOSE: 100 MG  UNIT DOSE: 50 MG
     Route: 065
  4. ELAVIL [Concomitant]
     Dosage: AS USED: 20 MG
     Route: 065
  5. ZETIA [Concomitant]
     Dosage: AS USED: 10 MG
     Route: 065

REACTIONS (5)
  - EXTRASYSTOLES [None]
  - HEART RATE ABNORMAL [None]
  - HEART RATE DECREASED [None]
  - HEART RATE INCREASED [None]
  - HEART RATE IRREGULAR [None]
